FAERS Safety Report 22658600 (Version 1)
Quarter: 2023Q2

REPORT INFORMATION
  Report Type: Spontaneous
  Country: US (occurrence: None)
  Receive Date: 20230629
  Receipt Date: 20230629
  Transmission Date: 20230722
  Serious: Yes (Hospitalization)
  Sender: FDA-Public Use
  Company Number: None

PATIENT
  Age: 67 Year
  Sex: Female
  Weight: 66.2 kg

DRUGS (1)
  1. DEXAMETHASONE PHOSPHATE [Suspect]
     Active Substance: DEXAMETHASONE PHOSPHATE
     Indication: Acute myeloid leukaemia
     Dosage: 1200 MG (18 MG/KG) EVERY 4 WEEKS IV?
     Route: 042
     Dates: start: 20230131, end: 20230620

REACTIONS (1)
  - Cerebral thrombosis [None]

NARRATIVE: CASE EVENT DATE: 20230626
